FAERS Safety Report 4464051-3 (Version None)
Quarter: 2004Q3

REPORT INFORMATION
  Report Type: 
  Country: None (occurrence: None)
  Receive Date: 20040928
  Receipt Date: 20040928
  Transmission Date: 20050211
  Serious: Yes (Hospitalization)
  Sender: FDA-Public Use
  Company Number: None

PATIENT
  Age: 67 Year
  Sex: Male
  Weight: 97.6 kg

DRUGS (6)
  1. GATIFLOXACIN [Suspect]
     Indication: PNEUMONIA
     Dosage: 400 MG DAILY BY MOUTH, BUT INCORRECTLY TOOK 400MG Q4H
     Route: 048
     Dates: start: 20040902, end: 20040908
  2. PAPAVERINE HCL [Concomitant]
  3. POTASSIUM CHLORIDE [Concomitant]
  4. FELODIPINE [Concomitant]
  5. FUROSEMIDE [Concomitant]
  6. LISINOPRIL [Concomitant]

REACTIONS (1)
  - HYPERGLYCAEMIA [None]
